FAERS Safety Report 6568788-1 (Version None)
Quarter: 2010Q1

REPORT INFORMATION
  Report Type: 
  Country: None (occurrence: None)
  Receive Date: 20100128
  Receipt Date: 20100122
  Transmission Date: 20100710
  Serious: Yes (Hospitalization)
  Sender: FDA-Public Use
  Company Number: 2010SP005276

PATIENT
  Age: 32 Year
  Sex: Female
  Weight: 46 kg

DRUGS (7)
  1. FOLLISTIM [Suspect]
     Indication: IN VITRO FERTILISATION
     Dosage: 225 IU; QD; SC, 150 IU; QD; SC
     Route: 058
     Dates: start: 20070117, end: 20070121
  2. FOLLISTIM [Suspect]
     Indication: IN VITRO FERTILISATION
     Dosage: 225 IU; QD; SC, 150 IU; QD; SC
     Route: 058
     Dates: start: 20070122, end: 20070125
  3. DUOLUTION [Concomitant]
  4. CETROTIDE [Concomitant]
  5. CHORIONIC GONADOTROPIN [Concomitant]
  6. ESTRADERM [Concomitant]
  7. PROGESTERONE [Concomitant]

REACTIONS (3)
  - DRUG EXPOSURE DURING PREGNANCY [None]
  - PREGNANCY [None]
  - PREMATURE LABOUR [None]
